FAERS Safety Report 5202340-5 (Version None)
Quarter: 2006Q4

REPORT INFORMATION
  Report Type: 
  Country: None (occurrence: None)
  Receive Date: 20061012
  Receipt Date: 20060815
  Transmission Date: 20070319
  Serious: Yes (Other)
  Sender: FDA-Public Use
  Company Number: 2006S1000158

PATIENT
  Age: 55 Year
  Sex: Male

DRUGS (10)
  1. CUBICIN [Suspect]
     Indication: WOUND INFECTION STAPHYLOCOCCAL
     Dosage: 500 MG; Q24H; IV
     Route: 042
     Dates: start: 20060806, end: 20060814
  2. GENTAMICIN SULFATE [Suspect]
     Indication: WOUND INFECTION STAPHYLOCOCCAL
     Dates: end: 20060801
  3. INSULIN [Concomitant]
  4. METFORMIN HCL [Concomitant]
  5. VALSARTAN [Concomitant]
  6. HYDROCHLOROTHIAZIDE [Concomitant]
  7. DILTIAZEM HCL [Concomitant]
  8. CLONIDINE [Concomitant]
  9. GENTAMICIN SULFATE [Concomitant]
  10. CEFEPIME [Concomitant]

REACTIONS (1)
  - RENAL FAILURE ACUTE [None]
